FAERS Safety Report 9314626 (Version 1)
Quarter: 2013Q2

REPORT INFORMATION
  Report Type: Spontaneous
  Country: AU (occurrence: AU)
  Receive Date: 20130529
  Receipt Date: 20130529
  Transmission Date: 20140414
  Serious: Yes (Other)
  Sender: FDA-Public Use
  Company Number: AU-ROCHE-1229681

PATIENT
  Sex: 0

DRUGS (3)
  1. HERCEPTIN [Suspect]
     Indication: BREAST CANCER METASTATIC
     Route: 065
  2. LAPATINIB [Concomitant]
  3. XELODA [Concomitant]
     Route: 065

REACTIONS (1)
  - Disease progression [Unknown]
